FAERS Safety Report 6968669-5 (Version None)
Quarter: 2010Q3

REPORT INFORMATION
  Report Type: 
  Country: None (occurrence: None)
  Receive Date: 20100907
  Receipt Date: 20100902
  Transmission Date: 20110219
  Serious: Yes (Hospitalization)
  Sender: FDA-Public Use
  Company Number: FR-AMGEN-KDC435604

PATIENT
  Sex: Female

DRUGS (4)
  1. VECTIBIX [Suspect]
     Indication: BREAST CANCER
     Route: 042
     Dates: start: 20100720
  2. ENDOXAN [Suspect]
     Route: 042
     Dates: start: 20100720
  3. FLUOROURACIL [Suspect]
     Route: 042
     Dates: start: 20100720
  4. FARMORUBICIN [Suspect]
     Route: 042
     Dates: start: 20100720

REACTIONS (1)
  - FEBRILE NEUTROPENIA [None]
